FAERS Safety Report 6556230-6 (Version None)
Quarter: 2010Q1

REPORT INFORMATION
  Report Type: 
  Country: None (occurrence: None)
  Receive Date: 20100128
  Receipt Date: 20090730
  Transmission Date: 20100710
  Serious: Yes (Other)
  Sender: FDA-Public Use
  Company Number: US-TEVA-204150USA

PATIENT
  Sex: Female
  Weight: 70.37 kg

DRUGS (3)
  1. COPAXONE [Suspect]
     Indication: MULTIPLE SCLEROSIS
     Route: 058
     Dates: start: 20090214
  2. FLUOXETINE [Concomitant]
     Route: 048
  3. ZANAFLEX [Concomitant]

REACTIONS (1)
  - BREAST CANCER [None]
